FAERS Safety Report 20571984 (Version 3)
Quarter: 2022Q3

REPORT INFORMATION
  Report Type: Spontaneous
  Country: US (occurrence: US)
  Receive Date: 20220309
  Receipt Date: 20220707
  Transmission Date: 20221026
  Serious: Yes (Hospitalization, Other)
  Sender: FDA-Public Use
  Company Number: US-ELI_LILLY_AND_COMPANY-US202203002298

PATIENT
  Sex: Male

DRUGS (2)
  1. ZYPREXA [Suspect]
     Active Substance: OLANZAPINE
     Indication: Affective disorder
     Dosage: 2.5 MG, UNKNOWN
     Route: 048
     Dates: start: 2005
  2. HUMULIN R [Concomitant]
     Active Substance: INSULIN HUMAN
     Indication: Diabetes mellitus

REACTIONS (5)
  - Diabetes mellitus [Unknown]
  - Pancreatic disorder [Not Recovered/Not Resolved]
  - Liver disorder [Unknown]
  - Hypertension [Unknown]
  - Blood glucose increased [Unknown]
